FAERS Safety Report 25128386 (Version 1)
Quarter: 2025Q1

REPORT INFORMATION
  Report Type: Spontaneous
  Country: AU (occurrence: AU)
  Receive Date: 20250327
  Receipt Date: 20250327
  Transmission Date: 20250409
  Serious: Yes (Other)
  Sender: TEVA
  Company Number: AU-TEVA-VS-3311895

PATIENT

DRUGS (2)
  1. AZACITIDINE [Suspect]
     Active Substance: AZACITIDINE
     Indication: Product used for unknown indication
     Route: 065
     Dates: start: 2025
  2. VENETOCLAX [Suspect]
     Active Substance: VENETOCLAX
     Indication: Product used for unknown indication
     Route: 065

REACTIONS (5)
  - Cytopenia [Unknown]
  - Neutropenia [Unknown]
  - Toxicity to various agents [Unknown]
  - Adverse drug reaction [Unknown]
  - Drug interaction [Unknown]
